FAERS Safety Report 18834258 (Version 1)
Quarter: 2021Q1

REPORT INFORMATION
  Report Type: Spontaneous
  Country: US (occurrence: US)
  Receive Date: 20210203
  Receipt Date: 20210203
  Transmission Date: 20210419
  Serious: Yes (Other)
  Sender: FDA-Public Use
  Company Number: US-JNJFOC-20210139273

PATIENT
  Sex: Male

DRUGS (2)
  1. LEVAQUIN [Suspect]
     Active Substance: LEVOFLOXACIN
     Indication: URINARY TRACT INFECTION
     Route: 065
     Dates: start: 20200103
  2. LEVAQUIN [Suspect]
     Active Substance: LEVOFLOXACIN
     Indication: EPIDIDYMITIS

REACTIONS (14)
  - Anxiety [Unknown]
  - Vision blurred [Not Recovered/Not Resolved]
  - Nightmare [Unknown]
  - Skin burning sensation [Unknown]
  - Nervous system disorder [Unknown]
  - Paranoia [Unknown]
  - Insomnia [Unknown]
  - Tremor [Unknown]
  - Headache [Not Recovered/Not Resolved]
  - Depression [Unknown]
  - Asthenia [Unknown]
  - Pain [Unknown]
  - Hypoaesthesia [Unknown]
  - Urticaria [Unknown]
